FAERS Safety Report 9743284 (Version 1)
Quarter: 2013Q4

REPORT INFORMATION
  Report Type: Spontaneous
  Country: US (occurrence: US)
  Receive Date: 20131210
  Receipt Date: 20131210
  Transmission Date: 20140711
  Serious: No
  Sender: FDA-Public Use
  Company Number: US-GILEAD-2009-0025518

PATIENT
  Age: 79 Year
  Sex: Female

DRUGS (10)
  1. LETAIRIS [Suspect]
     Indication: PULMONARY ARTERIAL HYPERTENSION
     Route: 048
     Dates: start: 20080908
  2. HECTOROL [Concomitant]
  3. COD LIVER OIL [Concomitant]
  4. VITAMIN D [Concomitant]
  5. TORSEMIDE [Concomitant]
  6. COUMADIN [Concomitant]
  7. COREG [Concomitant]
  8. ASPIRIN [Concomitant]
  9. ALLOPURINOL [Concomitant]
  10. AMBIEN [Concomitant]

REACTIONS (1)
  - Anaemia [Not Recovered/Not Resolved]
